FAERS Safety Report 9277185 (Version 2)
Quarter: 2013Q3

REPORT INFORMATION
  Report Type: Report from Study
  Country: US (occurrence: US)
  Receive Date: 20130508
  Receipt Date: 20130801
  Transmission Date: 20140515
  Serious: Yes (Hospitalization)
  Sender: FDA-Public Use
  Company Number: US-ROCHE-1212581

PATIENT
  Age: 63 Year
  Sex: Female
  Weight: 105.33 kg

DRUGS (16)
  1. BLINDED PERTUZUMAB [Suspect]
     Indication: HER-2 POSITIVE BREAST CANCER
     Dosage: LAST DOSE PRIOR TO DIAHRRHEA AND FEBRILE NEUTROPENIA: 29/MAR/2013. PERMANENTLY DISCONTINUED
     Route: 042
     Dates: start: 20130329
  2. BLINDED PERTUZUMAB [Suspect]
     Dosage: LAST DOSE PRIOR TO DIAHRRHEA AND FEBRILE NEUTROPENIA: 29/MAR/2013. PERMANENTLY DISCONTINUED
     Route: 042
     Dates: end: 20130418
  3. TRASTUZUMAB [Suspect]
     Indication: HER-2 POSITIVE BREAST CANCER
     Dosage: LAST DOSE PRIOR TO DIARRHEA AND FEBRILE NEUTROPENIA: 29/MAR/2013, LAST DOSE PRIOR TO VOLUME DEPLETIO
     Route: 042
     Dates: start: 20130329
  4. TRASTUZUMAB [Suspect]
     Dosage: LAST DOSE PRIOR TO DIARRHEA AND FEBRILE NEUTROPENIA: 29/MAR/2013, LAST DOSE PRIOR TO VOLUME DEPLETIO
     Route: 042
  5. TRASTUZUMAB [Suspect]
     Route: 042
     Dates: start: 20130530
  6. DOCETAXEL [Suspect]
     Indication: HER-2 POSITIVE BREAST CANCER
     Dosage: LAST DOSE PRIOR TO FEBRILE NEUTROPENIA AND DIARRHEA: 29/MAR/2013, LAST DOSE PRIOR TO VOLUME DEPLETIO
     Route: 042
     Dates: start: 20130329, end: 20130509
  7. CARBOPLATIN [Suspect]
     Indication: HER-2 POSITIVE BREAST CANCER
     Dosage: LAST DOSE PRIOR TO DIARRHEA AND FEBRILE NEUTROPENIA: 29/MAR/2013, LAST DOSE PRIOR TO VOLUME DEPLETIO
     Route: 042
     Dates: start: 20130329, end: 20130509
  8. ASA [Concomitant]
     Route: 065
     Dates: start: 20130103
  9. CYMBALTA [Concomitant]
     Route: 065
     Dates: start: 20130103
  10. LORAZEPAM [Concomitant]
     Route: 065
     Dates: start: 20130301
  11. NIACIN [Concomitant]
     Route: 065
     Dates: start: 20050101
  12. TEMAZEPAM [Concomitant]
     Route: 065
     Dates: start: 20130103
  13. TRAMADOL [Concomitant]
     Route: 065
     Dates: start: 20130103
  14. ZOFRAN [Concomitant]
     Route: 065
     Dates: start: 20130329
  15. LOMOTIL (UNITED STATES) [Concomitant]
     Route: 065
     Dates: start: 20130329
  16. VITAMIN B12 [Concomitant]
     Route: 065
     Dates: start: 20050101

REACTIONS (3)
  - Diarrhoea [Recovered/Resolved]
  - Hypovolaemia [Recovered/Resolved]
  - Febrile neutropenia [Recovered/Resolved]
